FAERS Safety Report 8901423 (Version 1)
Quarter: 2012Q4

REPORT INFORMATION
  Report Type: Report from Study
  Country: CA (occurrence: CA)
  Receive Date: 20121109
  Receipt Date: 20121109
  Transmission Date: 20130627
  Serious: Yes (Other)
  Sender: FDA-Public Use
  Company Number: CA-JNJFOC-20121100200

PATIENT
  Age: 22 Year
  Sex: Female

DRUGS (2)
  1. REMICADE [Suspect]
     Indication: RHEUMATOID ARTHRITIS
     Route: 042
     Dates: start: 20121030
  2. REMICADE [Suspect]
     Indication: RHEUMATOID ARTHRITIS
     Dosage: therapy duration 4.5 years, frequency ^6/52^
     Route: 042

REACTIONS (1)
  - Fungal oesophagitis [Unknown]
